FAERS Safety Report 14881130 (Version 2)
Quarter: 2019Q2

REPORT INFORMATION
  Report Type: Spontaneous
  Country: US (occurrence: US)
  Receive Date: 20180511
  Receipt Date: 20190417
  Transmission Date: 20190711
  Serious: Yes (Hospitalization, Other)
  Sender: FDA-Public Use
  Company Number: US-SA-2018SA128586

PATIENT
  Sex: Male

DRUGS (1)
  1. CEREZYME [Suspect]
     Active Substance: IMIGLUCERASE
     Dosage: UNK UNK,UNK
     Route: 041

REACTIONS (5)
  - Colon cancer stage III [Unknown]
  - Jaundice [Unknown]
  - Splenomegaly [Not Recovered/Not Resolved]
  - Wound [Unknown]
  - Hepatic cirrhosis [Unknown]
